FAERS Safety Report 13178817 (Version 1)
Quarter: 2017Q1

REPORT INFORMATION
  Report Type: Report from Study
  Country: US (occurrence: US)
  Receive Date: 20170202
  Receipt Date: 20170202
  Transmission Date: 20170428
  Serious: No
  Sender: FDA-Public Use
  Company Number: US-ALEXION PHARMACEUTICALS INC.-A201700831

PATIENT
  Sex: Male

DRUGS (1)
  1. STRENSIQ [Suspect]
     Active Substance: ASFOTASE ALFA
     Indication: HYPOPHOSPHATASIA
     Route: 058

REACTIONS (6)
  - Aspartate aminotransferase increased [Unknown]
  - Bone density decreased [Unknown]
  - Blood albumin increased [Unknown]
  - Blood alkaline phosphatase increased [Unknown]
  - Weight gain poor [Unknown]
  - Bone deformity [Unknown]

NARRATIVE: CASE EVENT DATE: 20161206
